FAERS Safety Report 19481890 (Version 1)
Quarter: 2021Q2

REPORT INFORMATION
  Report Type: Spontaneous
  Country: US (occurrence: US)
  Receive Date: 20210630
  Receipt Date: 20210630
  Transmission Date: 20210717
  Serious: Yes (Other)
  Sender: FDA-Public Use
  Company Number: None

PATIENT
  Age: 59 Year
  Sex: Female
  Weight: 54.43 kg

DRUGS (1)
  1. BENLYSTA [Suspect]
     Active Substance: BELIMUMAB
     Indication: SYSTEMIC LUPUS ERYTHEMATOSUS
     Dosage: ?          QUANTITY:1 DF DOSAGE FORM;?
     Dates: start: 202102, end: 202105

REACTIONS (5)
  - Anxiety [None]
  - Depression [None]
  - Suicidal ideation [None]
  - Fluid retention [None]
  - Weight increased [None]
